FAERS Safety Report 12412786 (Version 1)
Quarter: 2016Q2

REPORT INFORMATION
  Report Type: Spontaneous
  Country: US (occurrence: US)
  Receive Date: 20160527
  Receipt Date: 20160527
  Transmission Date: 20160815
  Serious: No
  Sender: FDA-Public Use
  Company Number: US-PFIZER INC-2016246009

PATIENT
  Age: 82 Year
  Sex: Female

DRUGS (16)
  1. ZANAFLEX [Concomitant]
     Active Substance: TIZANIDINE HYDROCHLORIDE
     Dosage: 4 MG, AS NEEDED (EVERY 8 HOURS AS NEEDED NOT TO EXCEED 3 DOSES IN 24 HOURS FOR 30 DAYS)
     Route: 048
     Dates: start: 20160331
  2. LYRICA [Suspect]
     Active Substance: PREGABALIN
     Dosage: 100 MG, 1X/DAY
     Route: 048
     Dates: start: 20160331
  3. HYDROCHLOROTHIAZIDE. [Concomitant]
     Active Substance: HYDROCHLOROTHIAZIDE
     Dosage: 25 MG, 1X/DAY
     Route: 048
     Dates: start: 20160331
  4. PANTOPRAZOLE [Concomitant]
     Active Substance: PANTOPRAZOLE SODIUM
     Dosage: 20 MG, 1X/DAY
     Route: 048
  5. POTASSIUM CHLORIDE. [Concomitant]
     Active Substance: POTASSIUM CHLORIDE
     Dosage: 10 MEQ, DAILY
     Route: 048
     Dates: start: 20160331
  6. ATIVAN [Concomitant]
     Active Substance: LORAZEPAM
     Dosage: 2 MG, AS NEEDED (BID AS NEEDED)
     Route: 048
     Dates: start: 20160331
  7. DEMEROL [Concomitant]
     Active Substance: MEPERIDINE HYDROCHLORIDE
     Dosage: 50 MG, AS NEEDED (EVERY 8 HOURS AS NEEDED)
     Route: 048
     Dates: start: 20160331
  8. VITAMIN D3 [Concomitant]
     Active Substance: CHOLECALCIFEROL
     Dosage: 1000 IU, UNK
     Route: 048
  9. ASPIRIN. [Concomitant]
     Active Substance: ASPIRIN
     Dosage: 81 MG, 1X/DAY
     Route: 048
  10. LEVOTHYROXINE. [Concomitant]
     Active Substance: LEVOTHYROXINE
     Dosage: 50 UG, 1X/DAY (ONE IN THE AM 30 MINUTES BEFORE BREAKFAST WITH WATER)
     Route: 048
     Dates: start: 20160331
  11. NORVASC [Concomitant]
     Active Substance: AMLODIPINE BESYLATE
     Dosage: 5 MG, DAILY
     Route: 048
     Dates: start: 20160331
  12. ROPINIROLE. [Concomitant]
     Active Substance: ROPINIROLE
     Dosage: 0.25 MG, 3X/DAY
     Route: 048
  13. ESTRADIOL. [Concomitant]
     Active Substance: ESTRADIOL
     Dosage: 1 MG, DAILY
     Route: 048
     Dates: start: 20151231
  14. PROTONIX [Concomitant]
     Active Substance: PANTOPRAZOLE SODIUM
     Dosage: 20 MG, 2X/DAY (FOR 30 DAYS)
     Route: 048
     Dates: start: 20160331
  15. ALLOPURINOL. [Concomitant]
     Active Substance: ALLOPURINOL
     Dosage: 100 MG, 2X/DAY
     Route: 048
     Dates: start: 20160331
  16. VITAMIN B12 [Concomitant]
     Active Substance: CYANOCOBALAMIN
     Dosage: 1 ML, MONTHLY (1000 MCG/ML; FOR 30 DAYS)
     Route: 058
     Dates: start: 20150303

REACTIONS (3)
  - Drug prescribing error [Unknown]
  - Lethargy [Unknown]
  - Drug hypersensitivity [Unknown]
